FAERS Safety Report 8059780-9 (Version None)
Quarter: 2012Q1

REPORT INFORMATION
  Report Type: 
  Country: None (occurrence: None)
  Receive Date: 20120119
  Receipt Date: 20120119
  Transmission Date: 20120608
  Serious: Yes (Hospitalization)
  Sender: FDA-Public Use
  Company Number: None

PATIENT
  Age: 74 Year
  Sex: Male
  Weight: 80.3 kg

DRUGS (7)
  1. LANTUS [Concomitant]
  2. ASPIRIN [Suspect]
     Indication: CORONARY ARTERY DISEASE
     Dosage: 81MG DAILY PO CHRONIC
     Route: 048
  3. MOISTEER EYE DROPS [Concomitant]
  4. PLAVIX [Suspect]
     Indication: CORONARY ARTERY DISEASE
     Dosage: 75MG DAILY PO CHRONIC
     Route: 048
  5. METFORMIN HYDROCHLORIDE [Concomitant]
  6. NOVOLOG [Concomitant]
  7. FISH OIL [Concomitant]

REACTIONS (4)
  - UPPER GASTROINTESTINAL HAEMORRHAGE [None]
  - CORONARY ARTERIAL STENT INSERTION [None]
  - PORTAL HYPERTENSIVE GASTROPATHY [None]
  - VARICES OESOPHAGEAL [None]
